FAERS Safety Report 8131126-7 (Version None)
Quarter: 2012Q1

REPORT INFORMATION
  Report Type: 
  Country: None (occurrence: None)
  Receive Date: 20120213
  Receipt Date: 20120203
  Transmission Date: 20120608
  Serious: Yes (Hospitalization)
  Sender: FDA-Public Use
  Company Number: AU-JNJFOC-20110202523

PATIENT
  Sex: Female

DRUGS (3)
  1. DURAGESIC-100 [Suspect]
     Dosage: 25 UG/HR 12.5 UG/HR
     Route: 062
  2. OXYCODONE HCL [Concomitant]
     Indication: BREAKTHROUGH PAIN
     Route: 065
  3. DURAGESIC-100 [Suspect]
     Indication: FIBROMYALGIA
     Dosage: 25MCG/HR 12.5MCG/HR
     Route: 062

REACTIONS (6)
  - WRONG TECHNIQUE IN DRUG USAGE PROCESS [None]
  - PRODUCT ADHESION ISSUE [None]
  - LETHARGY [None]
  - SOMNOLENCE [None]
  - DRUG INEFFECTIVE [None]
  - WITHDRAWAL SYNDROME [None]
